FAERS Safety Report 20033605 (Version 1)
Quarter: 2021Q4

REPORT INFORMATION
  Report Type: Spontaneous
  Country: US (occurrence: US)
  Receive Date: 20211104
  Receipt Date: 20211104
  Transmission Date: 20220303
  Serious: Yes (Other)
  Sender: FDA-Public Use
  Company Number: US-INTRA-CELLULAR THERAPIES, INC.-2021ICT00475

PATIENT

DRUGS (1)
  1. CAPLYTA [Suspect]
     Active Substance: LUMATEPERONE
     Dosage: UNK

REACTIONS (3)
  - Neuroleptic malignant syndrome [Unknown]
  - Hot flush [Unknown]
  - Pyrexia [Unknown]
